FAERS Safety Report 6610543-8 (Version None)
Quarter: 2010Q1

REPORT INFORMATION
  Report Type: 
  Country: None (occurrence: None)
  Receive Date: 20100302
  Receipt Date: 20100219
  Transmission Date: 20100710
  Serious: Yes (Other)
  Sender: FDA-Public Use
  Company Number: B0636541A

PATIENT
  Sex: Female
  Weight: 86 kg

DRUGS (1)
  1. ALLI [Suspect]
     Indication: OBESITY
     Dosage: 60MG THREE TIMES PER DAY
     Route: 065
     Dates: start: 20090801, end: 20090801

REACTIONS (1)
  - SICK SINUS SYNDROME [None]
